FAERS Safety Report 23611007 (Version 1)
Quarter: 2024Q1

REPORT INFORMATION
  Report Type: Report from Study
  Country: EG (occurrence: EG)
  Receive Date: 20240308
  Receipt Date: 20240308
  Transmission Date: 20240410
  Serious: Yes (Life-Threatening, Hospitalization)
  Sender: FDA-Public Use
  Company Number: EG-002147023-NVSC2024EG043450

PATIENT
  Age: 64 Year
  Sex: Female

DRUGS (2)
  1. PIQRAY [Suspect]
     Active Substance: ALPELISIB
     Indication: Breast cancer metastatic
     Dosage: ONE TABLET, 300 MG, QD (150 MG PLUS 150 MG)
     Route: 048
     Dates: start: 202309, end: 202311
  2. PIQRAY [Suspect]
     Active Substance: ALPELISIB
     Indication: Metastases to bone

REACTIONS (2)
  - Blood glucose increased [Recovering/Resolving]
  - Off label use [Unknown]

NARRATIVE: CASE EVENT DATE: 20231101
